FAERS Safety Report 7104430-9 (Version None)
Quarter: 2010Q4

REPORT INFORMATION
  Report Type: 
  Country: None (occurrence: None)
  Receive Date: 20101116
  Receipt Date: 20101108
  Transmission Date: 20110411
  Serious: Yes (Hospitalization)
  Sender: FDA-Public Use
  Company Number: US-BIOGENIDEC-2010BI034908

PATIENT
  Age: 50 Year
  Sex: Female
  Weight: 53 kg

DRUGS (4)
  1. TYSABRI [Suspect]
     Indication: MULTIPLE SCLEROSIS
     Route: 042
     Dates: start: 20080101, end: 20080201
  2. TYSABRI [Suspect]
     Route: 042
     Dates: start: 20100801
  3. WARFARIN [Concomitant]
     Indication: MITRAL VALVE REPLACEMENT
     Dates: start: 19860101
  4. WARFARIN [Concomitant]
     Indication: AORTIC VALVE REPLACEMENT
     Dates: start: 19860101

REACTIONS (2)
  - CEREBROVASCULAR ACCIDENT [None]
  - HYPERSENSITIVITY [None]
